FAERS Safety Report 5039405-7 (Version None)
Quarter: 2006Q2

REPORT INFORMATION
  Report Type: 
  Country: None (occurrence: None)
  Receive Date: 20060629
  Receipt Date: 20060621
  Transmission Date: 20061013
  Serious: Yes (Other)
  Sender: FDA-Public Use
  Company Number: FR-JNJFOC-20060605208

PATIENT
  Age: 35 Year
  Sex: Female

DRUGS (2)
  1. EPITOMAX [Suspect]
     Indication: EPILEPSY
     Route: 048
  2. DEPAKENE [Concomitant]
     Route: 065

REACTIONS (1)
  - CATARACT [None]
